FAERS Safety Report 6570135-6 (Version None)
Quarter: 2010Q1

REPORT INFORMATION
  Report Type: 
  Country: None (occurrence: None)
  Receive Date: 20100202
  Receipt Date: 20100202
  Transmission Date: 20100710
  Serious: Yes (Life-Threatening)
  Sender: FDA-Public Use
  Company Number: None

PATIENT
  Sex: Female
  Weight: 58.9676 kg

DRUGS (3)
  1. ZOLPIDEM [Suspect]
     Indication: INSOMNIA
     Dosage: 10MG 3-4 TIMES / WEEK PO
     Route: 048
     Dates: start: 20091214, end: 20100128
  2. AMITRIPTOLYNE [Concomitant]
  3. BUSPAR [Concomitant]

REACTIONS (4)
  - ABNORMAL BEHAVIOUR [None]
  - OVERDOSE [None]
  - PRODUCT QUALITY ISSUE [None]
  - SOMNAMBULISM [None]
